FAERS Safety Report 19510818 (Version 1)
Quarter: 2021Q3

REPORT INFORMATION
  Report Type: Spontaneous
  Country: US (occurrence: US)
  Receive Date: 20210708
  Receipt Date: 20210708
  Transmission Date: 20211014
  Serious: No
  Sender: FDA-Public Use
  Company Number: None

PATIENT
  Age: 65 Year
  Sex: Female
  Weight: 72.57 kg

DRUGS (1)
  1. COSENTYX [Suspect]
     Active Substance: SECUKINUMAB
     Indication: PSORIATIC ARTHROPATHY
     Dosage: INJECTE 150MG (1 PEN) SUBCUTANEOUSLY EVERY  WEEK FOR 5 WEEKS AS DIRECTED
     Route: 058
     Dates: start: 202105

REACTIONS (1)
  - Infection [None]
